FAERS Safety Report 18263238 (Version 2)
Quarter: 2020Q4

REPORT INFORMATION
  Report Type: Spontaneous
  Country: US (occurrence: US)
  Receive Date: 20200914
  Receipt Date: 20201012
  Transmission Date: 20210113
  Serious: No
  Sender: FDA-Public Use
  Company Number: US-BIOGEN-2020BI00923024

PATIENT
  Age: 47 Year
  Sex: Female

DRUGS (2)
  1. TECFIDERA [Suspect]
     Active Substance: DIMETHYL FUMARATE
     Indication: MULTIPLE SCLEROSIS
     Dosage: STARTING DOSE
     Route: 048
     Dates: start: 20200902, end: 20200904
  2. TECFIDERA [Suspect]
     Active Substance: DIMETHYL FUMARATE
     Route: 048
     Dates: start: 20200907

REACTIONS (3)
  - Dyspnoea [Recovered/Resolved]
  - Chest pain [Recovered/Resolved]
  - Breast pain [Unknown]

NARRATIVE: CASE EVENT DATE: 20200902
